FAERS Safety Report 9661305 (Version 2)
Quarter: 2013Q4

REPORT INFORMATION
  Report Type: Report from Study
  Country: US (occurrence: US)
  Receive Date: 20131031
  Receipt Date: 20131031
  Transmission Date: 20140711
  Serious: Yes (Hospitalization)
  Sender: FDA-Public Use
  Company Number: US-SA-2013SA106192

PATIENT
  Sex: Female

DRUGS (1)
  1. AUBAGIO [Suspect]
     Dosage: SHE STARTED TERIFLUNOMIDE THREE DAYS AGO
     Route: 048
     Dates: start: 20131013

REACTIONS (12)
  - Fall [Unknown]
  - Feeling jittery [Unknown]
  - Nervousness [Unknown]
  - Feeling abnormal [Unknown]
  - Heart rate increased [Unknown]
  - Back pain [Unknown]
  - Pain [Unknown]
  - Headache [Unknown]
  - Hypoaesthesia [Unknown]
  - Paraesthesia [Unknown]
  - Dyspnoea [Unknown]
  - Nausea [Unknown]
